FAERS Safety Report 16122107 (Version 2)
Quarter: 2019Q3

REPORT INFORMATION
  Report Type: Spontaneous
  Country: US (occurrence: US)
  Receive Date: 20190327
  Receipt Date: 20190729
  Transmission Date: 20191004
  Serious: No
  Sender: FDA-Public Use
  Company Number: US-PFIZER INC-2018112578

PATIENT
  Age: 3 Year
  Sex: Female

DRUGS (3)
  1. GENOTROPIN [Suspect]
     Active Substance: SOMATROPIN
     Indication: DANDY-WALKER SYNDROME
     Dosage: 0.5 MG, 6 DAYS A WEEK (5MG/ 0.5MG 6 DAYS A WEEK)
     Dates: start: 20171101
  2. GENOTROPIN [Suspect]
     Active Substance: SOMATROPIN
     Dosage: 0.5 MG, 6 DAYS A WEEK (5MG/ 0.5MG 6 DAYS A WEEK)
  3. GENOTROPIN [Suspect]
     Active Substance: SOMATROPIN
     Dosage: ALTERNATING DOSAGE OF 0.6MG INJECTION 3 DAYS/WEEK AND 0.7MG INJECTION 3 DAYS/WEEK

REACTIONS (2)
  - Off label use [Not Recovered/Not Resolved]
  - Drug ineffective for unapproved indication [Not Recovered/Not Resolved]
